FAERS Safety Report 5722330-3 (Version None)
Quarter: 2008Q2

REPORT INFORMATION
  Report Type: 
  Country: None (occurrence: None)
  Receive Date: 20080429
  Receipt Date: 20071120
  Transmission Date: 20081010
  Serious: No
  Sender: FDA-Public Use
  Company Number: US-ASTRAZENECA-2007UW26739

PATIENT
  Age: 76 Year
  Sex: Male
  Weight: 83.9 kg

DRUGS (2)
  1. NEXIUM [Suspect]
     Indication: STOMACH DISCOMFORT
     Route: 048
  2. WARFARIN SODIUM [Concomitant]

REACTIONS (1)
  - LOSS OF CONSCIOUSNESS [None]
